FAERS Safety Report 8597545-X (Version None)
Quarter: 2012Q3

REPORT INFORMATION
  Report Type: 
  Country: None (occurrence: None)
  Receive Date: 20120816
  Receipt Date: 20120802
  Transmission Date: 20120928
  Serious: Yes (Death)
  Sender: FDA-Public Use
  Company Number: JP-SANOFI-AVENTIS-2012SA052925

PATIENT
  Age: 60 Year
  Sex: Male
  Weight: 67.4 kg

DRUGS (10)
  1. CRESTOR [Concomitant]
     Dates: start: 20120215
  2. HEPARIN [Concomitant]
     Route: 042
     Dates: end: 20120612
  3. PLAVIX [Suspect]
     Indication: PERCUTANEOUS CORONARY INTERVENTION
     Route: 048
     Dates: start: 20120208, end: 20120327
  4. PLETAL [Concomitant]
     Dates: start: 20120215, end: 20120319
  5. ANPLAG [Concomitant]
  6. PLETAL [Concomitant]
     Route: 048
     Dates: start: 20120620, end: 20120627
  7. HEPARIN [Concomitant]
     Dosage: ROUTE: D.I.V
     Route: 042
     Dates: start: 20120701
  8. ASPIRIN [Suspect]
     Indication: PERCUTANEOUS CORONARY INTERVENTION
     Route: 048
     Dates: start: 20120628, end: 20120701
  9. PLETAL [Concomitant]
     Dates: start: 20120613
  10. PLAVIX [Suspect]
     Route: 048
     Dates: start: 20120613, end: 20120620

REACTIONS (1)
  - HEPATITIS FULMINANT [None]
